FAERS Safety Report 4832223-1 (Version None)
Quarter: 2005Q4

REPORT INFORMATION
  Report Type: 
  Country: None (occurrence: None)
  Receive Date: 20051118
  Receipt Date: 20051115
  Transmission Date: 20060501
  Serious: Yes (Disabling, Other)
  Sender: FDA-Public Use
  Company Number: CA-MERCK-0511CAN00095

PATIENT
  Sex: Female

DRUGS (1)
  1. VIOXX [Suspect]
     Route: 048
     Dates: start: 20010101, end: 20040928

REACTIONS (3)
  - CARDIOVASCULAR DISORDER [None]
  - LIFE EXPECTANCY SHORTENED [None]
  - MYOCARDIAL INFARCTION [None]
